FAERS Safety Report 4328948-7 (Version None)
Quarter: 2004Q1

REPORT INFORMATION
  Report Type: 
  Country: None (occurrence: None)
  Receive Date: 20040329
  Receipt Date: 20040121
  Transmission Date: 20041129
  Serious: No
  Sender: FDA-Public Use
  Company Number: 04P-163-0247865-00

PATIENT
  Age: 42 Year
  Sex: Female

DRUGS (8)
  1. HUMIRA [Suspect]
     Indication: RHEUMATOID ARTHRITIS
     Dosage: 40 MG, 1 IN 2 WI, SUBCUTANEOUS
     Route: 058
     Dates: start: 20030801
  2. BIRTH CONTROL PILLS [Concomitant]
  3. ROFECOXIB [Concomitant]
  4. FOLIC ACID [Concomitant]
  5. METHOTREXATE SODIUM [Concomitant]
  6. IRON [Concomitant]
  7. METFORMIN HYDROCHLORIDE [Concomitant]
  8. ALPRAZOLAM [Concomitant]

REACTIONS (1)
  - INJECTION SITE BURNING [None]
